FAERS Safety Report 11069792 (Version 1)
Quarter: 2015Q2

REPORT INFORMATION
  Report Type: Spontaneous
  Country: SE (occurrence: SE)
  Receive Date: 20150427
  Receipt Date: 20150427
  Transmission Date: 20150821
  Serious: Yes (Hospitalization)
  Sender: FDA-Public Use
  Company Number: SE-TEVA-556796ISR

PATIENT
  Age: 44 Year
  Sex: Male

DRUGS (1)
  1. MIRTAZAPINE. [Suspect]
     Active Substance: MIRTAZAPINE

REACTIONS (4)
  - Toxicity to various agents [Unknown]
  - Fatigue [Unknown]
  - Suicidal ideation [Unknown]
  - Blood potassium increased [Unknown]
